FAERS Safety Report 16551378 (Version 1)
Quarter: 2019Q3

REPORT INFORMATION
  Report Type: Spontaneous
  Country: US (occurrence: US)
  Receive Date: 20190529
  Receipt Date: 20190529
  Transmission Date: 20191004
  Serious: Yes (Death, Hospitalization)
  Sender: FDA-Public Use
  Company Number: None

PATIENT
  Age: 14 Year
  Sex: Male
  Weight: 65 kg

DRUGS (4)
  1. PREDNISONE. [Suspect]
     Active Substance: PREDNISONE
     Dates: end: 20190203
  2. MERCAPTOPURINE. [Suspect]
     Active Substance: MERCAPTOPURINE
     Dates: end: 20190315
  3. METHOTREXATE. [Suspect]
     Active Substance: METHOTREXATE
     Dates: end: 20190125
  4. VINCRISTINE [Suspect]
     Active Substance: VINCRISTINE
     Dates: end: 20190222

REACTIONS (3)
  - Acute respiratory distress syndrome [None]
  - Influenza [None]
  - Lung infiltration [None]

NARRATIVE: CASE EVENT DATE: 20190416
